FAERS Safety Report 10090381 (Version 2)
Quarter: 2014Q2

REPORT INFORMATION
  Report Type: Report from Study
  Country: BE (occurrence: BE)
  Receive Date: 20140421
  Receipt Date: 20140421
  Transmission Date: 20141212
  Serious: Yes (Hospitalization)
  Sender: FDA-Public Use
  Company Number: BE-ABBVIE-11P-013-0733650-00

PATIENT
  Age: 36 Year
  Sex: Female

DRUGS (8)
  1. HUMIRA [Suspect]
     Indication: CROHN^S DISEASE
     Dosage: BASELINE
     Route: 058
     Dates: start: 20091001, end: 20091001
  2. HUMIRA [Suspect]
     Dosage: BASELINE
     Route: 058
  3. HUMIRA [Suspect]
     Route: 058
  4. PERDOLAN [Concomitant]
     Indication: HEADACHE
     Dates: start: 20091120
  5. D-CURE [Concomitant]
     Indication: VITAMIN D DEFICIENCY
     Dates: start: 200912
  6. QUESTRAN [Concomitant]
     Indication: DIARRHOEA
     Dates: start: 20110126
  7. QUESTRAN [Concomitant]
     Indication: BILE ACID MALABSORPTION
  8. FUROSEMIDE [Concomitant]
     Indication: OEDEMA PERIPHERAL

REACTIONS (3)
  - Pyrexia [Recovered/Resolved]
  - Chills [Recovered/Resolved]
  - Hyperhidrosis [Recovered/Resolved]
